FAERS Safety Report 22077601 (Version 1)
Quarter: 2023Q1

REPORT INFORMATION
  Report Type: Spontaneous
  Country: GB (occurrence: None)
  Receive Date: 20230309
  Receipt Date: 20230309
  Transmission Date: 20230418
  Serious: Yes (Hospitalization)
  Sender: FDA-Public Use
  Company Number: GB-BROWN + BURK(UK) LIMITED-ML2023-01278

PATIENT
  Age: 27 Year
  Sex: Female

DRUGS (3)
  1. CLINDAMYCIN [Suspect]
     Active Substance: CLINDAMYCIN
     Indication: Fusobacterium infection
  2. MEROPENEM [Suspect]
     Active Substance: MEROPENEM
     Indication: Fusobacterium infection
  3. METRONIDAZOLE [Suspect]
     Active Substance: METRONIDAZOLE
     Indication: Fusobacterium infection

REACTIONS (1)
  - Drug ineffective [Unknown]
